FAERS Safety Report 11782578 (Version 2)
Quarter: 2016Q1

REPORT INFORMATION
  Report Type: Spontaneous
  Country: US (occurrence: US)
  Receive Date: 20151127
  Receipt Date: 20160108
  Transmission Date: 20160525
  Serious: Yes (Hospitalization)
  Sender: FDA-Public Use
  Company Number: US-009507513-1511USA011509

PATIENT
  Sex: Female

DRUGS (1)
  1. ENTEREG [Suspect]
     Active Substance: ALVIMOPAN
     Indication: INTESTINAL RESECTION
     Dosage: UNK
     Route: 048

REACTIONS (1)
  - Adverse reaction [Unknown]
